FAERS Safety Report 5492506-1 (Version None)
Quarter: 2007Q4

REPORT INFORMATION
  Report Type: 
  Country: None (occurrence: None)
  Receive Date: 20071015
  Receipt Date: 20070726
  Transmission Date: 20080405
  Serious: No
  Sender: FDA-Public Use
  Company Number: 2007SP002654

PATIENT
  Age: 44 Year
  Sex: Male

DRUGS (2)
  1. LUNESTA [Suspect]
     Dosage: 3 MG HS ORAL ; 3 MG 1X ORAL
     Route: 048
     Dates: start: 20060726, end: 20070726
  2. LUNESTA [Suspect]
     Dosage: 3 MG HS ORAL ; 3 MG 1X ORAL
     Route: 048
     Dates: start: 20070725

REACTIONS (2)
  - DRUG INEFFECTIVE [None]
  - INITIAL INSOMNIA [None]
